FAERS Safety Report 17922286 (Version 1)
Quarter: 2020Q2

REPORT INFORMATION
  Report Type: Spontaneous
  Country: US (occurrence: US)
  Receive Date: 20200620
  Receipt Date: 20200620
  Transmission Date: 20200714
  Serious: Yes (Other)
  Sender: FDA-Public Use
  Company Number: None

PATIENT
  Age: 70 Year
  Sex: Female

DRUGS (9)
  1. PLAVIX [Concomitant]
     Active Substance: CLOPIDOGREL BISULFATE
  2. LANTUS SOLOSTAR  5X3 ML * [Concomitant]
  3. LOTREL       CAP 5-20MG [Concomitant]
  4. TRULICITY PEN INJ 0 [Concomitant]
  5. METOPROLOL TART  TAB 50MG [Concomitant]
     Active Substance: METOPROLOL TARTRATE
  6. CHLORTHALIDONE  TAB 25MG [Concomitant]
  7. CRESTOR      TAB 5MG [Concomitant]
  8. JANUMET      TAB 50-500MG [Concomitant]
  9. DICLOFENAC [Suspect]
     Active Substance: DICLOFENAC
     Route: 048
     Dates: start: 20200618, end: 20200619

REACTIONS (3)
  - Heart rate increased [None]
  - Hallucination, visual [None]
  - Blood pressure increased [None]

NARRATIVE: CASE EVENT DATE: 20200618
